FAERS Safety Report 15962049 (Version 1)
Quarter: 2019Q1

REPORT INFORMATION
  Report Type: Spontaneous
  Country: DZ (occurrence: DZ)
  Receive Date: 20190214
  Receipt Date: 20190214
  Transmission Date: 20190417
  Serious: Yes (Death, Hospitalization)
  Sender: FDA-Public Use
  Company Number: DZ-CELGENEUS-DZA-20190203513

PATIENT
  Age: 46 Year
  Sex: Female

DRUGS (1)
  1. REVLIMID [Suspect]
     Active Substance: LENALIDOMIDE
     Indication: PLASMA CELL MYELOMA
     Route: 048

REACTIONS (5)
  - Epistaxis [Unknown]
  - General physical health deterioration [Unknown]
  - Plasma cell myeloma [Fatal]
  - Pancytopenia [Unknown]
  - Asthma [Unknown]

NARRATIVE: CASE EVENT DATE: 201812
